FAERS Safety Report 8475075-3 (Version None)
Quarter: 2012Q2

REPORT INFORMATION
  Report Type: 
  Country: None (occurrence: None)
  Receive Date: 20120628
  Receipt Date: 20120619
  Transmission Date: 20120825
  Serious: Yes (Hospitalization)
  Sender: FDA-Public Use
  Company Number: CA-JNJFOC-20111104372

PATIENT
  Sex: Female
  Weight: 82.3 kg

DRUGS (7)
  1. BRICANYL [Concomitant]
  2. REMICADE [Suspect]
     Indication: CROHN'S DISEASE
     Route: 042
  3. FLOVENT [Concomitant]
     Route: 065
  4. IMURAN [Concomitant]
  5. VENLAFAXINE [Concomitant]
  6. FLONASE [Concomitant]
  7. CETIRIZINE HCL [Concomitant]

REACTIONS (5)
  - CHOLELITHIASIS [None]
  - DEHYDRATION [None]
  - MATERNAL EXPOSURE DURING PREGNANCY [None]
  - NAUSEA [None]
  - VOMITING [None]
